FAERS Safety Report 26177418 (Version 1)
Quarter: 2025Q4

REPORT INFORMATION
  Report Type: Spontaneous
  Country: CN (occurrence: CN)
  Receive Date: 20251219
  Receipt Date: 20251219
  Transmission Date: 20260117
  Serious: Yes (Hospitalization, Other)
  Sender: Haleon PLC
  Company Number: CN-HALEON-2279713

PATIENT
  Age: 78 Year
  Sex: Female

DRUGS (1)
  1. IBUPROFEN [Suspect]
     Active Substance: IBUPROFEN
     Indication: Toothache
     Dosage: IBUPROFEN SUSTAINED RELEASE CAPSULE AT 1200-2000 MG/DAY

REACTIONS (10)
  - Duodenal ulcer perforation [Recovered/Resolved]
  - Muscle tightness [Recovered/Resolved]
  - Pneumoperitoneum [Recovered/Resolved]
  - Gastric ulcer perforation [Recovered/Resolved]
  - Abdominal pain upper [Recovered/Resolved]
  - Abdominal rebound tenderness [Recovered/Resolved]
  - Gastrooesophageal reflux disease [Recovered/Resolved]
  - Eructation [Recovered/Resolved]
  - Gastritis [Recovered/Resolved]
  - Gastric ulcer [Recovered/Resolved]
